FAERS Safety Report 7158257-2 (Version None)
Quarter: 2010Q4

REPORT INFORMATION
  Report Type: 
  Country: None (occurrence: None)
  Receive Date: 20101214
  Receipt Date: 20100401
  Transmission Date: 20110411
  Serious: No
  Sender: FDA-Public Use
  Company Number: US-ASTRAZENECA-2010SE14408

PATIENT
  Sex: Female

DRUGS (8)
  1. CRESTOR [Suspect]
     Route: 048
  2. NOVALOG [Concomitant]
     Dosage: 90 IN THE AM AND 65 IN THE PM, 5 UNITS WITH MEALS
     Route: 065
  3. FUROSEMIDE [Concomitant]
     Route: 065
  4. LISINOPRIL [Concomitant]
     Route: 065
  5. METOPROLOL SUCCINATE [Concomitant]
     Dosage: HALF TABLET TWICE DAILY
     Route: 065
  6. LOVASTATIN [Concomitant]
     Route: 065
  7. VERAPAMIL [Concomitant]
     Route: 048
  8. POTASSIUM CHLORIDE [Concomitant]
     Route: 065

REACTIONS (3)
  - BLOOD CHOLESTEROL INCREASED [None]
  - DIABETES MELLITUS [None]
  - HYPERTENSION [None]
